FAERS Safety Report 7558095-2 (Version None)
Quarter: 2011Q2

REPORT INFORMATION
  Report Type: 
  Country: None (occurrence: None)
  Receive Date: 20110620
  Receipt Date: 20110610
  Transmission Date: 20111010
  Serious: Yes (Hospitalization, Other)
  Sender: FDA-Public Use
  Company Number: US-PURDUE-USA-2011-0070220

PATIENT
  Age: 17 Year
  Sex: Female

DRUGS (4)
  1. HYDROMORPHONE HCL [Suspect]
     Indication: ACCIDENTAL EXPOSURE
  2. OXYCODONE HCL [Suspect]
     Indication: ACCIDENTAL EXPOSURE
  3. METHADONE HCL [Suspect]
     Indication: ACCIDENTAL EXPOSURE
  4. DIAZEPAM [Suspect]
     Indication: ACCIDENTAL EXPOSURE

REACTIONS (2)
  - OVERDOSE [None]
  - ACCIDENTAL EXPOSURE [None]
